FAERS Safety Report 16709178 (Version 1)
Quarter: 2019Q3

REPORT INFORMATION
  Report Type: Spontaneous
  Country: DE (occurrence: DE)
  Receive Date: 20190816
  Receipt Date: 20190816
  Transmission Date: 20191004
  Serious: Yes (Hospitalization)
  Sender: FDA-Public Use
  Company Number: PHHY2019DE184981

PATIENT
  Age: 79 Year
  Sex: Male

DRUGS (2)
  1. METHOTREXATE. [Suspect]
     Active Substance: METHOTREXATE
     Indication: PRODUCT USED FOR UNKNOWN INDICATION
     Dosage: 15 MG, (7.5 - 15 MG)
     Route: 065
  2. HUMIRA [Suspect]
     Active Substance: ADALIMUMAB
     Indication: RHEUMATOID ARTHRITIS
     Dosage: 40 MG, UNK
     Route: 058

REACTIONS (11)
  - Coronary artery disease [Unknown]
  - General physical health deterioration [Unknown]
  - Anxiety disorder [Unknown]
  - Hypertensive crisis [Unknown]
  - Respiratory alkalosis [Unknown]
  - Atrial fibrillation [Unknown]
  - Dysphagia [Unknown]
  - Hyperventilation [Unknown]
  - Motor neurone disease [Unknown]
  - Chronic fatigue syndrome [Unknown]
  - Cachexia [Unknown]

NARRATIVE: CASE EVENT DATE: 20180109
